FAERS Safety Report 6018647-8 (Version None)
Quarter: 2008Q4

REPORT INFORMATION
  Report Type: 
  Country: None (occurrence: None)
  Receive Date: 20081223
  Receipt Date: 20081216
  Transmission Date: 20090506
  Serious: Yes (Hospitalization)
  Sender: FDA-Public Use
  Company Number: US-GENENTECH-273992

PATIENT
  Sex: Female
  Weight: 107.3 kg

DRUGS (20)
  1. XOLAIR [Suspect]
     Indication: ASTHMA
     Dosage: 300 MG, Q2W
     Route: 058
     Dates: start: 20080301
  2. PREDNISONE TAB [Concomitant]
     Indication: DRUG USE FOR UNKNOWN INDICATION
  3. LASIX [Concomitant]
     Indication: DRUG USE FOR UNKNOWN INDICATION
  4. SYNTHROID [Concomitant]
     Indication: DRUG USE FOR UNKNOWN INDICATION
  5. LISINOPRIL [Concomitant]
     Indication: DRUG USE FOR UNKNOWN INDICATION
  6. ASPIRIN [Concomitant]
     Indication: DRUG USE FOR UNKNOWN INDICATION
  7. NOVOLOG [Concomitant]
     Indication: DRUG USE FOR UNKNOWN INDICATION
  8. LANTUS [Concomitant]
     Indication: DRUG USE FOR UNKNOWN INDICATION
  9. AMLODIPINE [Concomitant]
     Indication: DRUG USE FOR UNKNOWN INDICATION
  10. SPIRONOLACTONE [Concomitant]
     Indication: DRUG USE FOR UNKNOWN INDICATION
  11. PANTOPRAZOLE SODIUM [Concomitant]
     Indication: DRUG USE FOR UNKNOWN INDICATION
  12. ROIPNOL [Concomitant]
     Indication: DRUG USE FOR UNKNOWN INDICATION
  13. ATIVAN [Concomitant]
     Indication: DRUG USE FOR UNKNOWN INDICATION
  14. OXYGEN [Concomitant]
     Indication: DRUG USE FOR UNKNOWN INDICATION
  15. PREMARIN [Concomitant]
     Indication: DRUG USE FOR UNKNOWN INDICATION
  16. RETIN-A [Concomitant]
     Indication: DRUG USE FOR UNKNOWN INDICATION
  17. VERAPAMIL [Concomitant]
     Indication: DRUG USE FOR UNKNOWN INDICATION
  18. BENADRYL [Concomitant]
     Indication: PREMEDICATION
  19. ZANTAC [Concomitant]
     Indication: PREMEDICATION
  20. ZYRTEC [Concomitant]
     Indication: DRUG USE FOR UNKNOWN INDICATION

REACTIONS (1)
  - DYSPNOEA [None]
